FAERS Safety Report 25462082 (Version 2)
Quarter: 2025Q3

REPORT INFORMATION
  Report Type: Spontaneous
  Country: US (occurrence: US)
  Receive Date: 20250620
  Receipt Date: 20250723
  Transmission Date: 20251021
  Serious: Yes (Other)
  Sender: AMERICAN REGENT
  Company Number: US-AMERICAN REGENT INC-2025002493

PATIENT
  Age: 51 Year
  Sex: Female

DRUGS (1)
  1. VENOFER [Suspect]
     Active Substance: IRON SUCROSE
     Indication: Product used for unknown indication
     Route: 042
     Dates: start: 20250617, end: 20250617

REACTIONS (6)
  - Cold sweat [Unknown]
  - Pain [Unknown]
  - Urticaria [Unknown]
  - Confusional state [Unknown]
  - Syncope [Unknown]
  - Product quality issue [Unknown]

NARRATIVE: CASE EVENT DATE: 20250617
